FAERS Safety Report 5691732-6 (Version None)
Quarter: 2008Q2

REPORT INFORMATION
  Report Type: 
  Country: None (occurrence: None)
  Receive Date: 20080402
  Receipt Date: 20080328
  Transmission Date: 20081010
  Serious: Yes (Hospitalization)
  Sender: FDA-Public Use
  Company Number: US-ALLERGAN-0801576US

PATIENT
  Sex: Male
  Weight: 64.399 kg

DRUGS (11)
  1. BOTOX COSMETIC [Suspect]
     Indication: SKIN WRINKLING
     Dosage: 68 UNITS, SINGLE
     Route: 030
     Dates: start: 20080202, end: 20080202
  2. XOPENEX [Concomitant]
     Route: 048
  3. ZETIA [Concomitant]
     Indication: BLOOD CHOLESTEROL
     Route: 048
  4. AVODART [Concomitant]
     Route: 048
  5. BROMELIN [Concomitant]
     Route: 048
  6. ADVAIR HFA [Concomitant]
     Indication: CHRONIC OBSTRUCTIVE PULMONARY DISEASE
     Route: 055
  7. SPIRIVA [Concomitant]
     Indication: CHRONIC OBSTRUCTIVE PULMONARY DISEASE
     Route: 055
  8. PULMICORT [Concomitant]
     Indication: CHRONIC OBSTRUCTIVE PULMONARY DISEASE
     Route: 055
  9. ASACOL [Concomitant]
     Route: 048
  10. VITAMINS NOS [Concomitant]
     Route: 048
  11. LASIX [Concomitant]
     Route: 048

REACTIONS (9)
  - CHEST DISCOMFORT [None]
  - DIZZINESS [None]
  - DYSPHAGIA [None]
  - DYSPHONIA [None]
  - DYSPNOEA [None]
  - EYELID PTOSIS [None]
  - INFLUENZA LIKE ILLNESS [None]
  - NAUSEA [None]
  - NECK PAIN [None]
